FAERS Safety Report 21846518 (Version 3)
Quarter: 2023Q1

REPORT INFORMATION
  Report Type: Other
  Country: GB (occurrence: None)
  Receive Date: 20230111
  Receipt Date: 20230221
  Transmission Date: 20230417
  Serious: No
  Sender: FDA-Public Use
  Company Number: GB-ROCHE-3260676

PATIENT
  Age: 32 Year
  Sex: Female

DRUGS (4)
  1. OCRELIZUMAB [Suspect]
     Active Substance: OCRELIZUMAB
     Indication: Relapsing-remitting multiple sclerosis
     Dosage: SUBSEQUENT DOSE ON: 02/JUL/2019
     Route: 042
     Dates: start: 20190618, end: 20190618
  2. OCRELIZUMAB [Suspect]
     Active Substance: OCRELIZUMAB
     Dosage: SUBSEQUENT DOSE ON: 06/JAN/2020, 06/JUL/2020, 05/JAN/2021, 30/JUN/2021, 04/JAN/2022, 09/JAN/2023
     Route: 042
     Dates: start: 20220704, end: 20220704
  3. NATALIZUMAB [Concomitant]
     Active Substance: NATALIZUMAB
  4. COPAXONE [Concomitant]
     Active Substance: GLATIRAMER ACETATE
     Dates: start: 20180305

REACTIONS (2)
  - Upper respiratory tract infection [Recovered/Resolved]
  - COVID-19 [Recovered/Resolved]

NARRATIVE: CASE EVENT DATE: 20221101
